FAERS Safety Report 19704611 (Version 1)
Quarter: 2021Q3

REPORT INFORMATION
  Report Type: Report from Study
  Country: US (occurrence: US)
  Receive Date: 20210816
  Receipt Date: 20210816
  Transmission Date: 20211014
  Serious: Yes (Other)
  Sender: FDA-Public Use
  Company Number: US-MYLANLABS-2021M1049114

PATIENT
  Age: 48 Year
  Sex: Female
  Weight: 91 kg

DRUGS (1)
  1. GLATIRAMER ACETATE INJECTION [Suspect]
     Active Substance: GLATIRAMER ACETATE
     Indication: MULTIPLE SCLEROSIS
     Dosage: 40 MILLIGRAM, 3XW
     Route: 042
     Dates: start: 20210802

REACTIONS (14)
  - Asthenia [Unknown]
  - Body temperature increased [Recovered/Resolved]
  - Injection site erythema [Unknown]
  - Myalgia [Unknown]
  - Loss of consciousness [Unknown]
  - Hyperhidrosis [Unknown]
  - Fatigue [Unknown]
  - Injection site pain [Unknown]
  - Injection site discolouration [Unknown]
  - Product use complaint [Recovered/Resolved]
  - Feeling cold [Unknown]
  - Injection site swelling [Unknown]
  - Injection site mass [Unknown]
  - Pain in extremity [Unknown]

NARRATIVE: CASE EVENT DATE: 20210802
